FAERS Safety Report 16000803 (Version 2)
Quarter: 2019Q1

REPORT INFORMATION
  Report Type: Spontaneous
  Country: FR (occurrence: FR)
  Receive Date: 20190225
  Receipt Date: 20190226
  Transmission Date: 20190418
  Serious: Yes (Life-Threatening)
  Sender: FDA-Public Use
  Company Number: FR-ACCORD-109127

PATIENT
  Age: 71 Year
  Sex: Female

DRUGS (10)
  1. METFORMIN [Suspect]
     Active Substance: METFORMIN HYDROCHLORIDE
     Indication: TYPE 2 DIABETES MELLITUS
     Route: 048
     Dates: end: 20180106
  2. STALEVO [Concomitant]
     Active Substance: CARBIDOPA\ENTACAPONE\LEVODOPA
  3. EZETROL [Concomitant]
     Active Substance: EZETIMIBE
  4. RAMIPRIL. [Suspect]
     Active Substance: RAMIPRIL
     Indication: HYPERTENSION
     Route: 048
     Dates: end: 20180106
  5. SINEMET [Concomitant]
     Active Substance: CARBIDOPA\LEVODOPA
  6. LASILIX [Concomitant]
     Active Substance: FUROSEMIDE
  7. XALATAN [Concomitant]
     Active Substance: LATANOPROST
  8. PREVISCAN [Concomitant]
     Dosage: 20 MG, SCORED TABLET
  9. DAONIL [Suspect]
     Active Substance: GLYBURIDE
     Indication: TYPE 2 DIABETES MELLITUS
     Dosage: STRENGTH: 5 MG, SCORED TABLET
     Route: 048
     Dates: end: 20180106
  10. BISOCE [Concomitant]
     Active Substance: BISOPROLOL

REACTIONS (4)
  - Vomiting [Recovered/Resolved]
  - Diarrhoea [Recovered/Resolved]
  - Hypoglycaemia [Recovered/Resolved]
  - Lactic acidosis [Recovered/Resolved]

NARRATIVE: CASE EVENT DATE: 20180106
